FAERS Safety Report 4656811-0 (Version None)
Quarter: 2005Q2

REPORT INFORMATION
  Report Type: 
  Country: None (occurrence: None)
  Receive Date: 20050505
  Receipt Date: 20050421
  Transmission Date: 20051028
  Serious: Yes (Life-Threatening, Hospitalization)
  Sender: FDA-Public Use
  Company Number: 2005AP01310

PATIENT
  Age: 57 Year
  Sex: Female
  Weight: 75 kg

DRUGS (5)
  1. IRESSA [Suspect]
     Indication: BREAST CANCER
     Dosage: 250 MG DAILY PO
     Route: 048
     Dates: start: 20050105, end: 20050221
  2. EPIRUBICIN [Suspect]
     Indication: BREAST CANCER
     Dosage: 160 MG ONCE IV
     Route: 042
     Dates: start: 20050105, end: 20050105
  3. EPIRUBICIN [Suspect]
     Indication: BREAST CANCER
     Dosage: 160 MG ONCE IV
     Route: 042
     Dates: start: 20050126, end: 20050126
  4. PACLITAXEL [Suspect]
     Indication: BREAST CANCER
     Dosage: 315 MG ONCE IV
     Route: 042
     Dates: start: 20050105, end: 20050105
  5. PACLITAXEL [Suspect]
     Indication: BREAST CANCER
     Dosage: 315 MG ONCE IV
     Route: 042
     Dates: start: 20050126, end: 20050126

REACTIONS (5)
  - HEPATIC STEATOSIS [None]
  - HEPATITIS A POSITIVE [None]
  - HEPATITIS B POSITIVE [None]
  - INFLUENZA [None]
  - SYNCOPE [None]
